FAERS Safety Report 12774593 (Version 2)
Quarter: 2016Q4

REPORT INFORMATION
  Report Type: Spontaneous
  Country: US (occurrence: US)
  Receive Date: 20160923
  Receipt Date: 20161012
  Transmission Date: 20170207
  Serious: No
  Sender: FDA-Public Use
  Company Number: US-ASTRAZENECA-2016SE97227

PATIENT
  Age: 9165 Day
  Sex: Female
  Weight: 47.6 kg

DRUGS (7)
  1. CLARINEX D [Concomitant]
     Indication: MULTIPLE ALLERGIES
     Route: 048
     Dates: start: 2006
  2. FLUTICASONE [Concomitant]
     Active Substance: FLUTICASONE\FLUTICASONE PROPIONATE
     Indication: MULTIPLE ALLERGIES
     Dosage: 50 MCG 1 SPRAY PER NOSTRIL TWICE DAILY
     Route: 045
     Dates: start: 2006
  3. PROAIR HFA [Concomitant]
     Active Substance: ALBUTEROL SULFATE
     Indication: ASTHMA
     Dosage: 90.0UG AS REQUIRED
     Route: 055
     Dates: start: 2013
  4. PULMICORT FLEXHALER [Suspect]
     Active Substance: BUDESONIDE
     Indication: MULTIPLE ALLERGIES
     Dosage: 180 MCG 225 MG,1 DOSE IN THE AM AND 1 DOSE IN THE PM
     Route: 055
     Dates: start: 2006
  5. PULMICORT FLEXHALER [Suspect]
     Active Substance: BUDESONIDE
     Indication: ASTHMA
     Dosage: 1 DOSE TWICE DAILY
     Route: 055
     Dates: start: 20160831
  6. PULMICORT FLEXHALER [Suspect]
     Active Substance: BUDESONIDE
     Indication: ASTHMA
     Dosage: 180 MCG 225 MG,1 DOSE IN THE AM AND 1 DOSE IN THE PM
     Route: 055
     Dates: start: 2006
  7. PULMICORT FLEXHALER [Suspect]
     Active Substance: BUDESONIDE
     Indication: MULTIPLE ALLERGIES
     Dosage: 1 DOSE TWICE DAILY
     Route: 055
     Dates: start: 20160831

REACTIONS (6)
  - Device failure [Unknown]
  - Device issue [Unknown]
  - Circumstance or information capable of leading to medication error [Recovered/Resolved]
  - Intentional product misuse [Recovered/Resolved]
  - Dyspnoea [Recovered/Resolved]
  - Product packaging issue [Unknown]

NARRATIVE: CASE EVENT DATE: 20160829
